FAERS Safety Report 19429405 (Version 1)
Quarter: 2021Q2

REPORT INFORMATION
  Report Type: Spontaneous
  Country: FR (occurrence: FR)
  Receive Date: 20210617
  Receipt Date: 20210617
  Transmission Date: 20210717
  Serious: Yes (Hospitalization)
  Sender: FDA-Public Use
  Company Number: FR-TEVA-2021-FR-1921962

PATIENT
  Age: 67 Year
  Sex: Female
  Weight: 66 kg

DRUGS (13)
  1. ACTISKENAN 5 MG, GELULE [Concomitant]
     Active Substance: MORPHINE SULFATE
  2. KARDEGIC [Concomitant]
     Active Substance: ASPIRIN DL-LYSINE
  3. LEVOTHYROX 100 MICROGRAMMES, COMPRIME SECABLE [Concomitant]
     Active Substance: LEVOTHYROXINE
  4. TEGRETOL [Concomitant]
     Active Substance: CARBAMAZEPINE
  5. PEMBROLIZUMAB MK?3475 50 MG, POUDRE POUR SOLUTION POUR PERFUSION [Suspect]
     Active Substance: PEMBROLIZUMAB
     Indication: SQUAMOUS CELL CARCINOMA
     Dosage: 200 MG
     Dates: start: 20210423
  6. FLUOROURACILE [Suspect]
     Active Substance: FLUOROURACIL
     Indication: SQUAMOUS CELL CARCINOMA
     Dosage: 6795 MG
     Dates: start: 20210423
  7. SKENAN [Concomitant]
     Active Substance: MORPHINE SULFATE
  8. DOLIPRANE 100 MG, POUDRE POUR SOLUTION BUVABLE EN SACHET?DOSE [Concomitant]
  9. RIVOTRIL [Concomitant]
     Active Substance: CLONAZEPAM
  10. SKENAN [Concomitant]
     Active Substance: MORPHINE SULFATE
  11. CARBOPLATINE [Suspect]
     Active Substance: CARBOPLATIN
     Indication: SQUAMOUS CELL CARCINOMA
     Dosage: 473 MG
     Dates: start: 20210423
  12. ZOPICLONE ALTER 7,5 MG, COMPRIME PELLICULE SECABLE [Concomitant]
     Active Substance: ZOPICLONE
  13. MACROGOL 4000 ARROW 4 G, POUDRE POUR SOLUTION BUVABLE EN SACHET [Concomitant]

REACTIONS (1)
  - Tubulointerstitial nephritis [Recovering/Resolving]

NARRATIVE: CASE EVENT DATE: 20210513
